FAERS Safety Report 13012866 (Version 6)
Quarter: 2017Q2

REPORT INFORMATION
  Report Type: Spontaneous
  Country: US (occurrence: US)
  Receive Date: 20161209
  Receipt Date: 20170405
  Transmission Date: 20170830
  Serious: Yes (Other)
  Sender: FDA-Public Use
  Company Number: US-SAOL THERAPEUTICS-2016SAO01066

PATIENT
  Age: 34 Year
  Sex: Female

DRUGS (3)
  1. BACLOFEN. [Suspect]
     Active Substance: BACLOFEN
     Dosage: 199 ?G, \DAY
  2. BACLOFEN. [Suspect]
     Active Substance: BACLOFEN
     Dosage: 119 ?G, \DAY
     Dates: end: 20161121
  3. BACLOFEN. [Suspect]
     Active Substance: BACLOFEN
     Dosage: 135 ?G, \DAY
     Dates: start: 20161121

REACTIONS (11)
  - Muscle twitching [Unknown]
  - Coccydynia [Not Recovered/Not Resolved]
  - Muscle spasms [Unknown]
  - Implant site swelling [Not Recovered/Not Resolved]
  - Muscle rigidity [Not Recovered/Not Resolved]
  - Muscle spasticity [Not Recovered/Not Resolved]
  - Device occlusion [Not Recovered/Not Resolved]
  - Sleep disorder [Unknown]
  - Musculoskeletal pain [Not Recovered/Not Resolved]
  - Sciatica [Unknown]
  - Pain in extremity [Not Recovered/Not Resolved]

NARRATIVE: CASE EVENT DATE: 2016
